FAERS Safety Report 15524950 (Version 1)
Quarter: 2018Q4

REPORT INFORMATION
  Report Type: Spontaneous
  Country: TW (occurrence: TW)
  Receive Date: 20181019
  Receipt Date: 20181019
  Transmission Date: 20190205
  Serious: Yes (Other)
  Sender: FDA-Public Use
  Company Number: TW-009507513-1810TWN008352

PATIENT
  Age: 85 Year
  Sex: Female

DRUGS (1)
  1. DAPTOMYCIN. [Suspect]
     Active Substance: DAPTOMYCIN
     Indication: STAPHYLOCOCCAL INFECTION
     Dosage: UNK
     Dates: start: 20180102

REACTIONS (2)
  - Rash [Unknown]
  - Neutropenia [Unknown]

NARRATIVE: CASE EVENT DATE: 20180113
